FAERS Safety Report 10213831 (Version 1)
Quarter: 2014Q2

REPORT INFORMATION
  Report Type: Spontaneous
  Country: DE (occurrence: None)
  Receive Date: 20140529
  Receipt Date: 20140529
  Transmission Date: 20141212
  Serious: Yes (Other)
  Sender: FDA-Public Use
  Company Number: DE-20140086

PATIENT
  Age: 56 Year
  Sex: Female

DRUGS (1)
  1. GADOTERIC ACID [Suspect]
     Indication: PRODUCT USED FOR UNKNOWN INDICATION
     Dosage: 10 ML (10 ML, 1 IN 1 D) INTRAVENOUS (NOT OTHERWISE SPECIFIED)
     Route: 042
     Dates: start: 20140423, end: 20140423

REACTIONS (6)
  - Injection site extravasation [None]
  - Injection site pain [None]
  - Injection site haematoma [None]
  - Injection site erythema [None]
  - Injection site hypoaesthesia [None]
  - Injection site swelling [None]
